FAERS Safety Report 10101683 (Version 1)
Quarter: 2014Q2

REPORT INFORMATION
  Report Type: Spontaneous
  Country: US (occurrence: None)
  Receive Date: 20140423
  Receipt Date: 20140423
  Transmission Date: 20141212
  Serious: Yes (Life-Threatening, Hospitalization, Disabling, Other)
  Sender: FDA-Public Use
  Company Number: None

PATIENT
  Age: 61 Year
  Sex: Male
  Weight: 82.56 kg

DRUGS (2)
  1. PRADAXA [Suspect]
     Indication: THROMBOSIS
     Dosage: 2 PILLS TWICE DAILY TAKEN BY MOUTH
     Route: 048
     Dates: start: 20131216, end: 20140204
  2. PRADAXA [Suspect]
     Indication: PROPHYLAXIS
     Dosage: 2 PILLS TWICE DAILY TAKEN BY MOUTH
     Route: 048
     Dates: start: 20131216, end: 20140204

REACTIONS (1)
  - Cerebrovascular accident [None]
